FAERS Safety Report 7622256-4 (Version None)
Quarter: 2011Q3

REPORT INFORMATION
  Report Type: 
  Country: None (occurrence: None)
  Receive Date: 20110720
  Receipt Date: 20110316
  Transmission Date: 20111222
  Serious: Yes (Life-Threatening)
  Sender: FDA-Public Use
  Company Number: ES-BAYER-2011-023777

PATIENT
  Sex: Female

DRUGS (1)
  1. ASPIRIN [Suspect]
     Route: 048

REACTIONS (1)
  - HYPERSENSITIVITY [None]
